FAERS Safety Report 5712421-5 (Version None)
Quarter: 2008Q2

REPORT INFORMATION
  Report Type: 
  Country: None (occurrence: None)
  Receive Date: 20080422
  Receipt Date: 20080410
  Transmission Date: 20081010
  Serious: Yes (Other)
  Sender: FDA-Public Use
  Company Number: PHBS2007PE18764

PATIENT
  Age: 17 Year
  Sex: Female

DRUGS (3)
  1. TRILEPTAL [Suspect]
     Indication: BIPOLAR DISORDER
     Dosage: 600 MG, QD
     Route: 048
     Dates: start: 20070804, end: 20071001
  2. TRILEPTAL [Suspect]
     Dosage: 900 MG, QD
     Route: 048
     Dates: start: 20071001, end: 20071111
  3. TRILEPTAL [Suspect]
     Route: 048
     Dates: start: 20071108

REACTIONS (6)
  - CHILLS [None]
  - GENERALISED ERYTHEMA [None]
  - MASS [None]
  - PRURITUS GENERALISED [None]
  - PYREXIA [None]
  - SWELLING FACE [None]
